FAERS Safety Report 5921358-8 (Version None)
Quarter: 2008Q4

REPORT INFORMATION
  Report Type: 
  Country: None (occurrence: None)
  Receive Date: 20081014
  Receipt Date: 20080930
  Transmission Date: 20090506
  Serious: Yes (Other)
  Sender: FDA-Public Use
  Company Number: 2008-1424

PATIENT
  Age: 43 Year
  Sex: Female

DRUGS (2)
  1. LANREOTIDE AUTOGEL (LANREOTIDE ACETATE) (LANREOTIDE ACETATE) [Suspect]
     Indication: ACROMEGALY
     Dosage: (120 MG, 1 IN 28 D) INTRAMUSCULAR
     Route: 030
     Dates: start: 20080101, end: 20080912
  2. LETROX [Concomitant]

REACTIONS (3)
  - BURNING SENSATION [None]
  - INJECTION SITE NODULE [None]
  - RASH [None]
